FAERS Safety Report 5829817-3 (Version None)
Quarter: 2008Q3

REPORT INFORMATION
  Report Type: 
  Country: None (occurrence: None)
  Receive Date: 20080801
  Receipt Date: 20080516
  Transmission Date: 20090109
  Serious: No
  Sender: FDA-Public Use
  Company Number: US-BAYER-200812259BCC

PATIENT
  Age: 50 Year
  Sex: Male
  Weight: 95 kg

DRUGS (1)
  1. ALEVE (CAPLET) [Suspect]
     Indication: PAIN
     Dosage: TOTAL DAILY DOSE: 440 MG  UNIT DOSE: 220 MG
     Route: 048
     Dates: start: 20080510, end: 20080516

REACTIONS (1)
  - PAIN [None]
